FAERS Safety Report 16335036 (Version 1)
Quarter: 2019Q2

REPORT INFORMATION
  Report Type: Spontaneous
  Country: CN (occurrence: CN)
  Receive Date: 20190520
  Receipt Date: 20190520
  Transmission Date: 20190711
  Serious: Yes (Hospitalization)
  Sender: FDA-Public Use
  Company Number: CN-BAXTER-2019BAX009704

PATIENT
  Age: 31 Year
  Sex: Female
  Weight: 63 kg

DRUGS (12)
  1. ENDOXAN [Suspect]
     Active Substance: CYCLOPHOSPHAMIDE
     Dosage: DOSE RE-INTRODUCED
     Route: 042
  2. 0.9% SODIUM CHLORIDE INJECTION [Suspect]
     Active Substance: SODIUM CHLORIDE
     Dosage: DILUENT FOR DOCETAXEL, DOSE RE-INTRODUCED
     Route: 041
  3. 0.9% SODIUM CHLORIDE INJECTION [Suspect]
     Active Substance: SODIUM CHLORIDE
     Indication: MEDICATION DILUTION
     Dosage: DILUENT FOR CYCLOPHOSPHAMIDE OF 0.62 G
     Route: 042
     Dates: start: 20190308, end: 20190308
  4. 0.9% SODIUM CHLORIDE INJECTION [Suspect]
     Active Substance: SODIUM CHLORIDE
     Dosage: DILUENT FOR EPIRUBICIN, DOSE RE-INTRODUCED
     Route: 041
  5. 0.9% SODIUM CHLORIDE INJECTION [Suspect]
     Active Substance: SODIUM CHLORIDE
     Dosage: DILUENT FOR EPIRUBICIN 90 MG
     Route: 041
     Dates: start: 20190308, end: 20190308
  6. EPIRUBICIN HYDROCHLORIDE. [Suspect]
     Active Substance: EPIRUBICIN HYDROCHLORIDE
     Indication: BREAST CANCER
     Dosage: DILUTED WITH NORMAL SALINE OF 200 ML
     Route: 041
     Dates: start: 20190308, end: 20190308
  7. AISU [Suspect]
     Active Substance: DOCETAXEL
     Indication: BREAST CANCER
     Dosage: DILUTED WITH NORMAL SALINE OF 350 ML
     Route: 041
     Dates: start: 20190308, end: 20190308
  8. 0.9% SODIUM CHLORIDE INJECTION [Suspect]
     Active Substance: SODIUM CHLORIDE
     Dosage: DILUENT FOR DOCETAXEL 90 MG
     Route: 041
     Dates: start: 20190308, end: 20190308
  9. ENDOXAN [Suspect]
     Active Substance: CYCLOPHOSPHAMIDE
     Indication: BREAST CANCER
     Dosage: DILUTED WITH NORMAL SALINE OF 40 ML
     Route: 042
     Dates: start: 20190308, end: 20190308
  10. AISU [Suspect]
     Active Substance: DOCETAXEL
     Dosage: DOSE RE-INTRODUCED
     Route: 041
  11. EPIRUBICIN HYDROCHLORIDE. [Suspect]
     Active Substance: EPIRUBICIN HYDROCHLORIDE
     Dosage: DOSE RE-INTRODUCED
     Route: 041
  12. 0.9% SODIUM CHLORIDE INJECTION [Suspect]
     Active Substance: SODIUM CHLORIDE
     Dosage: DILUENT FOR CYCLOPHOSPHAMIDE, DOSE RE-INTRODUCED
     Route: 042

REACTIONS (1)
  - Bone marrow failure [Recovered/Resolved]

NARRATIVE: CASE EVENT DATE: 20190314
